FAERS Safety Report 4329987-2 (Version None)
Quarter: 2004Q1

REPORT INFORMATION
  Report Type: 
  Country: None (occurrence: None)
  Receive Date: 20040329
  Receipt Date: 20040322
  Transmission Date: 20041129
  Serious: Yes (Life-Threatening)
  Sender: FDA-Public Use
  Company Number: 04H-087-0254242-00

PATIENT

DRUGS (7)
  1. LEUCOVORIN CALCIUM [Suspect]
     Indication: CHEMOTHERAPY
     Dosage: 20 MG/M2, PER DAY, 5 DAYS, INTRAVENOUS (SEE IMAGE)
     Route: 042
  2. FLUOROURACIL [Suspect]
     Indication: CHEMOTHERAPY
     Dosage: 300 MG/M2, DAILY, 5 DAYS, INTRAVENOUS PUSH (SEE IMAGE)
     Route: 042
  3. CIS-DIAMINEDICHLOROPLATINUM [Suspect]
     Indication: CHEMOTHERAPY
     Dosage: 13 MG/M2, DAILY, OVER 2 HOURS X 5 DAYS; INTRAVENOUS
     Route: 042
  4. SODIUM CHLORIDE INJ [Concomitant]
  5. GRANISETRON [Concomitant]
  6. METOCLOPRAMIDE [Concomitant]
  7. METHYLPREDNISOLONE SODIUM SUCCINATE [Concomitant]

REACTIONS (1)
  - PNEUMONIA [None]
